FAERS Safety Report 14796830 (Version 3)
Quarter: 2018Q4

REPORT INFORMATION
  Report Type: Report from Study
  Country: US (occurrence: US)
  Receive Date: 20180423
  Receipt Date: 20181017
  Transmission Date: 20190204
  Serious: No
  Sender: FDA-Public Use
  Company Number: US-AMGEN-USASL2018050838

PATIENT
  Sex: Female

DRUGS (2)
  1. REPATHA [Suspect]
     Active Substance: EVOLOCUMAB
     Indication: BLOOD CHOLESTEROL INCREASED
     Dosage: 140 MG, Q2WK (TWICE MONTHLY)
     Route: 065
  2. REPATHA [Suspect]
     Active Substance: EVOLOCUMAB
     Indication: HYPERCHOLESTEROLAEMIA
     Dosage: 140 MG, QMO
     Route: 065

REACTIONS (9)
  - Sleep disorder due to a general medical condition [Unknown]
  - Rash [Recovered/Resolved]
  - Back injury [Unknown]
  - Neuralgia [Recovered/Resolved]
  - Off label use [Unknown]
  - Mobility decreased [Unknown]
  - Pruritus [Recovered/Resolved]
  - Pain in extremity [Recovered/Resolved]
  - Drug effect incomplete [Unknown]
